FAERS Safety Report 26155161 (Version 1)
Quarter: 2025Q4

REPORT INFORMATION
  Report Type: Spontaneous
  Country: US (occurrence: US)
  Receive Date: 20251215
  Receipt Date: 20251215
  Transmission Date: 20260117
  Serious: Yes (Hospitalization, Other)
  Sender: AMGEN
  Company Number: US-AMGEN-USASP2025244422

PATIENT
  Age: 61 Year
  Sex: Female

DRUGS (15)
  1. CARFILZOMIB [Suspect]
     Active Substance: CARFILZOMIB
     Indication: Plasma cell myeloma
     Dosage: UNK
     Route: 065
  2. FILGRASTIM [Suspect]
     Active Substance: FILGRASTIM
     Indication: Anaemia
     Dosage: UNK
     Route: 065
  3. FILGRASTIM [Suspect]
     Active Substance: FILGRASTIM
     Indication: Neutropenia
  4. FILGRASTIM [Suspect]
     Active Substance: FILGRASTIM
     Indication: Thrombocytopenia
  5. LENALIDOMIDE [Suspect]
     Active Substance: LENALIDOMIDE
     Indication: Plasma cell myeloma
     Dosage: UNK
     Route: 065
  6. DARATUMUMAB [Suspect]
     Active Substance: DARATUMUMAB
     Indication: Plasma cell myeloma
     Dosage: UNK
     Route: 065
  7. BORTEZOMIB [Concomitant]
     Active Substance: BORTEZOMIB
     Indication: Plasma cell myeloma
     Dosage: UNK
     Route: 065
  8. DEXAMETHASONE [Concomitant]
     Active Substance: DEXAMETHASONE
     Indication: Plasma cell myeloma
     Dosage: UNK
     Route: 065
  9. DEXAMETHASONE [Concomitant]
     Active Substance: DEXAMETHASONE
     Indication: Immune effector cell-associated HLH-like syndrome
  10. POMALIDOMIDE [Concomitant]
     Active Substance: POMALIDOMIDE
     Indication: Plasma cell myeloma
     Dosage: UNK
     Route: 065
  11. CYCLOPHOSPHAMIDE [Concomitant]
     Active Substance: CYCLOPHOSPHAMIDE
     Indication: Plasma cell myeloma
     Dosage: 300 MILLIGRAM/SQ. METER
     Route: 065
  12. FLUDARABINE [Concomitant]
     Active Substance: FLUDARABINE PHOSPHATE
     Indication: Plasma cell myeloma
     Dosage: 15 MILLIGRAM/SQ. METER
     Route: 065
  13. CILTACABTAGENE AUTOLEUCEL [Concomitant]
     Active Substance: CILTACABTAGENE AUTOLEUCEL
     Indication: Plasma cell myeloma
     Dosage: UNK, (0.3 X 10^6) CAR+T-CELLS/KG
     Route: 065
  14. SELINEXOR [Concomitant]
     Active Substance: SELINEXOR
     Indication: Plasma cell myeloma
     Dosage: UNK
     Route: 065
  15. BENDAMUSTINE [Concomitant]
     Active Substance: BENDAMUSTINE
     Indication: Plasma cell myeloma
     Dosage: UNK
     Route: 065

REACTIONS (14)
  - Acute kidney injury [Unknown]
  - Thrombotic microangiopathy [Unknown]
  - Cytokine release syndrome [Recovered/Resolved]
  - Plasma cell myeloma [Unknown]
  - Thrombocytopenia [Unknown]
  - Neutropenia [Unknown]
  - Immune effector cell-associated HLH-like syndrome [Unknown]
  - Lymphopenia [Unknown]
  - Chest pain [Unknown]
  - Pain in extremity [Unknown]
  - Therapy partial responder [Unknown]
  - Anaemia [Unknown]
  - Device dependence [Unknown]
  - Off label use [Unknown]
